FAERS Safety Report 7167415-2 (Version None)
Quarter: 2010Q4

REPORT INFORMATION
  Report Type: 
  Country: None (occurrence: None)
  Receive Date: 20101216
  Receipt Date: 20091125
  Transmission Date: 20110411
  Serious: No
  Sender: FDA-Public Use
  Company Number: A0828421A

PATIENT
  Age: 50 Year
  Sex: Female

DRUGS (1)
  1. NICOTINE POLACRILEX [Suspect]

REACTIONS (4)
  - DIARRHOEA [None]
  - DRY MOUTH [None]
  - MALAISE [None]
  - PALPITATIONS [None]
